FAERS Safety Report 16025455 (Version 1)
Quarter: 2019Q1

REPORT INFORMATION
  Report Type: Spontaneous
  Country: BR (occurrence: BR)
  Receive Date: 20190301
  Receipt Date: 20190301
  Transmission Date: 20190418
  Serious: Yes (Other)
  Sender: FDA-Public Use
  Company Number: BR-BAXTER-2019BAX004027

PATIENT
  Age: 33 Year
  Sex: Male
  Weight: 80 kg

DRUGS (27)
  1. FAULDVINCRI [Suspect]
     Active Substance: VINCRISTINE SULFATE
     Indication: DIFFUSE LARGE B-CELL LYMPHOMA
     Dosage: R-CHOP, 1ST CYCLE, DILUTED WITH 50 ML OF 0.9 % SALINE SOLUTION
     Route: 040
     Dates: start: 20190116, end: 20190116
  2. PARACETAMOL [Concomitant]
     Active Substance: ACETAMINOPHEN
     Indication: PRODUCT USED FOR UNKNOWN INDICATION
     Route: 048
  3. BAXTER GLICOSE 5% - 100 ML [Suspect]
     Active Substance: DEXTROSE
     Indication: MEDICATION DILUTION
     Dosage: DILUTED WITH 105.5 MG OF DOXORUBICIN, INFUSION TIME 20 MINUTES
     Route: 042
     Dates: start: 20190116, end: 20190116
  4. MABTHERA [Suspect]
     Active Substance: RITUXIMAB
     Indication: DIFFUSE LARGE B-CELL LYMPHOMA
     Dosage: R-CHOP, 1ST CYCLE, DILUTED WITH 500 ML OF 0.9% SALINE SOLUTION
     Route: 042
     Dates: start: 20190116, end: 20190116
  5. BAXTER GLICOSE 5% - 100 ML [Suspect]
     Active Substance: DEXTROSE
     Dosage: DILUTED WITH DOXORUBICIN
     Route: 042
     Dates: start: 20190211, end: 20190211
  6. MABTHERA [Suspect]
     Active Substance: RITUXIMAB
     Dosage: R-CHOP, 2ND CYCLE, DILUTED WITH 0.9% SALINE SOLUTION
     Route: 042
     Dates: start: 20190211, end: 20190211
  7. PREDNISONE. [Suspect]
     Active Substance: PREDNISONE
     Dosage: R-CHOP, 2ND CYCLE
     Route: 065
     Dates: start: 20190211, end: 20190211
  8. XARELTO [Concomitant]
     Active Substance: RIVAROXABAN
     Indication: PRODUCT USED FOR UNKNOWN INDICATION
     Route: 065
  9. CLORETO DE S?DIO - BAXTER [Suspect]
     Active Substance: SODIUM CHLORIDE
     Dosage: DILUTED WITH 2 MG OF VINCRISTINE
     Route: 040
     Dates: start: 20190116, end: 20190116
  10. CLORETO DE S?DIO - BAXTER [Suspect]
     Active Substance: SODIUM CHLORIDE
     Dosage: DILUTED WITH CYCLOPHOSPHAMIDE
     Route: 042
     Dates: start: 20190211, end: 20190211
  11. PREDNISONE. [Suspect]
     Active Substance: PREDNISONE
     Indication: DIFFUSE LARGE B-CELL LYMPHOMA
     Dosage: R-CHOP, 1ST CYCLE
     Route: 065
     Dates: start: 20190116, end: 20190116
  12. ACYCLOVIR. [Concomitant]
     Active Substance: ACYCLOVIR
     Indication: PRODUCT USED FOR UNKNOWN INDICATION
     Route: 065
  13. DEXAMETHASONE. [Concomitant]
     Active Substance: DEXAMETHASONE
     Indication: PRODUCT USED FOR UNKNOWN INDICATION
     Route: 042
  14. GENUXAL [Suspect]
     Active Substance: CYCLOPHOSPHAMIDE
     Dosage: R-CHOP, 2ND CYCLE, DILUTED WITH 0.9% SALINE SOLUTION
     Route: 042
     Dates: start: 20190211, end: 20190211
  15. CLORETO DE S?DIO - BAXTER [Suspect]
     Active Substance: SODIUM CHLORIDE
     Indication: MEDICATION DILUTION
     Dosage: DILUTED WITH 1582.5 MG OF CYCLOPHOSPHAMIDE
     Route: 042
     Dates: start: 20190116, end: 20190116
  16. CLORETO DE S?DIO - BAXTER [Suspect]
     Active Substance: SODIUM CHLORIDE
     Dosage: DILUTED WITH 791.25 MG OF RITUXIMAB
     Route: 042
     Dates: start: 20190116, end: 20190116
  17. FAULDOXO [Suspect]
     Active Substance: DOXORUBICIN HYDROCHLORIDE
     Dosage: R-CHOP, 2ND CYCLE, DILUTED WITH 5% GLYCOSED SOLUTION
     Route: 042
     Dates: start: 20190211, end: 20190211
  18. FAULDVINCRI [Suspect]
     Active Substance: VINCRISTINE SULFATE
     Dosage: R-CHOP, 2ND CYCLE, DILUTED WITH 0.9 % SALINE SOLUTION
     Route: 040
     Dates: start: 20190211, end: 20190211
  19. ZOLPIDEM [Concomitant]
     Active Substance: ZOLPIDEM\ZOLPIDEM TARTRATE
     Indication: PRODUCT USED FOR UNKNOWN INDICATION
     Route: 065
  20. GRANISETRON [Concomitant]
     Active Substance: GRANISETRON
     Indication: PRODUCT USED FOR UNKNOWN INDICATION
     Route: 042
  21. DIPHENHYDRAMINE. [Concomitant]
     Active Substance: DIPHENHYDRAMINE
     Indication: PRODUCT USED FOR UNKNOWN INDICATION
     Route: 042
  22. GENUXAL [Suspect]
     Active Substance: CYCLOPHOSPHAMIDE
     Indication: DIFFUSE LARGE B-CELL LYMPHOMA
     Dosage: R-CHOP, 1ST CYCLE, DILUTED WITH 250 ML OF 0.9% SALINE SOLUTION, INFUSION TIME: 30 MINUTES
     Route: 042
     Dates: start: 20190116, end: 20190116
  23. CLORETO DE S?DIO - BAXTER [Suspect]
     Active Substance: SODIUM CHLORIDE
     Dosage: DILUTED WITH VINCRISTINE
     Route: 042
     Dates: start: 20190211, end: 20190211
  24. BACTRIM [Concomitant]
     Active Substance: SULFAMETHOXAZOLE\TRIMETHOPRIM
     Indication: PRODUCT USED FOR UNKNOWN INDICATION
     Route: 065
  25. CLORETO DE S?DIO - BAXTER [Suspect]
     Active Substance: SODIUM CHLORIDE
     Dosage: DILUTED WITH RITUXIMAB
     Route: 042
     Dates: start: 20190211, end: 20190211
  26. FAULDOXO [Suspect]
     Active Substance: DOXORUBICIN HYDROCHLORIDE
     Indication: DIFFUSE LARGE B-CELL LYMPHOMA
     Dosage: R-CHOP, 1ST CYCLE, DILUTED WITH 50 ML OF  5% GLYCOSED SOLUTION
     Route: 042
     Dates: start: 20190116, end: 20190116
  27. FRONTAL [Concomitant]
     Active Substance: ALPRAZOLAM
     Indication: PRODUCT USED FOR UNKNOWN INDICATION
     Route: 065

REACTIONS (1)
  - Neutropenia [Recovered/Resolved]

NARRATIVE: CASE EVENT DATE: 20190201
